FAERS Safety Report 6555611-4 (Version None)
Quarter: 2010Q1

REPORT INFORMATION
  Report Type: 
  Country: None (occurrence: None)
  Receive Date: 20100128
  Receipt Date: 20100122
  Transmission Date: 20100710
  Serious: Yes (Death, Life-Threatening, Hospitalization)
  Sender: FDA-Public Use
  Company Number: PE-BRISTOL-MYERS SQUIBB COMPANY-14395974

PATIENT
  Age: 76 Year
  Sex: Female

DRUGS (7)
  1. ABATACEPT [Suspect]
     Indication: RHEUMATOID ARTHRITIS
     Dosage: GIVEN VIA IV AND ALSO VIA SC. INTERRUPTED ON 23OCT08.
     Route: 042
     Dates: start: 20080924
  2. PLACEBO [Suspect]
     Indication: RHEUMATOID ARTHRITIS
     Dosage: GIVEN VIA IV AND ALSO VIA SC. INTERRUPTED ON 23OCT08.
     Route: 058
     Dates: start: 20080924
  3. METHOTREXATE [Concomitant]
     Dates: start: 20080429, end: 20081104
  4. PREDNISONE TAB [Concomitant]
     Dates: start: 20071218
  5. NAPROXEN [Concomitant]
     Dates: start: 20080701
  6. RANITIDINE HCL [Concomitant]
     Route: 042
     Dates: start: 20081111, end: 20081126
  7. HYDROCORTISONE [Concomitant]
     Route: 042
     Dates: start: 20081106, end: 20081122

REACTIONS (3)
  - PNEUMONIA [None]
  - SEPTIC SHOCK [None]
  - URINARY TRACT INFECTION [None]
